FAERS Safety Report 10112291 (Version 2)
Quarter: 2014Q2

REPORT INFORMATION
  Report Type: Report from Study
  Country: US (occurrence: US)
  Receive Date: 20140425
  Receipt Date: 20140617
  Transmission Date: 20141212
  Serious: Yes (Hospitalization)
  Sender: FDA-Public Use
  Company Number: US-CELGENEUS-163-C4047-14043180

PATIENT
  Age: 75 Year
  Sex: Female
  Weight: 87 kg

DRUGS (4)
  1. CC-4047 [Suspect]
     Indication: AMYLOIDOSIS
     Dosage: 3 MILLIGRAM
     Route: 048
     Dates: start: 20131230, end: 201404
  2. CC-4047 [Suspect]
     Dosage: 3 MILLIGRAM
     Route: 048
     Dates: start: 20140409
  3. DEXAMETHASONE [Suspect]
     Indication: AMYLOIDOSIS
     Route: 065
     Dates: start: 20131230, end: 20140409
  4. VELCADE [Suspect]
     Indication: AMYLOIDOSIS
     Route: 058
     Dates: start: 20131230, end: 20140409

REACTIONS (1)
  - Mental status changes [Recovered/Resolved]
